FAERS Safety Report 7452970-5 (Version None)
Quarter: 2011Q2

REPORT INFORMATION
  Report Type: 
  Country: None (occurrence: None)
  Receive Date: 20110502
  Receipt Date: 20110419
  Transmission Date: 20111010
  Serious: Yes (Hospitalization)
  Sender: FDA-Public Use
  Company Number: US-JNJFOC-20110408666

PATIENT
  Sex: Female
  Weight: 100.7 kg

DRUGS (6)
  1. METHOTREXATE [Concomitant]
     Dosage: ONE DOSE
     Route: 048
  2. REMICADE [Suspect]
     Indication: COLITIS ULCERATIVE
     Route: 042
  3. METHOTREXATE [Concomitant]
     Indication: CROHN'S DISEASE
     Dosage: ONE DOSE
     Route: 048
  4. METHOTREXATE [Concomitant]
     Dosage: ONE DOSE
     Route: 048
  5. METHOTREXATE [Concomitant]
     Indication: COLITIS ULCERATIVE
     Dosage: ONE DOSE
     Route: 048
  6. REMICADE [Suspect]
     Indication: CROHN'S DISEASE
     Route: 042

REACTIONS (7)
  - LETHARGY [None]
  - DECREASED APPETITE [None]
  - ABNORMAL FAECES [None]
  - HYPERTENSION [None]
  - DYSPNOEA [None]
  - RECTAL HAEMORRHAGE [None]
  - DIARRHOEA [None]
